FAERS Safety Report 19444839 (Version 2)
Quarter: 2024Q2

REPORT INFORMATION
  Report Type: Report from Study
  Country: CA (occurrence: CA)
  Receive Date: 20210621
  Receipt Date: 20240503
  Transmission Date: 20240715
  Serious: Yes (Hospitalization)
  Sender: FDA-Public Use
  Company Number: CA-TAKEDA-2021TUS037237

PATIENT
  Age: 38 Year
  Sex: Female

DRUGS (7)
  1. LANADELUMAB [Suspect]
     Active Substance: LANADELUMAB
     Indication: Hereditary angioedema with C1 esterase inhibitor deficiency
     Dosage: UNK UNK, Q2WEEKS
     Route: 065
     Dates: start: 20210519
  2. LANADELUMAB [Suspect]
     Active Substance: LANADELUMAB
     Dosage: UNK UNK, Q2WEEKS
     Route: 058
  3. FIRAZYR [Suspect]
     Active Substance: ICATIBANT ACETATE
     Indication: Product used for unknown indication
     Dosage: UNK
     Route: 065
  4. FIRAZYR [Suspect]
     Active Substance: ICATIBANT ACETATE
     Indication: Product used for unknown indication
     Dosage: UNK
     Route: 065
  5. FIRAZYR [Suspect]
     Active Substance: ICATIBANT ACETATE
     Dosage: UNK
     Route: 065
     Dates: start: 20210514
  6. FIRAZYR [Suspect]
     Active Substance: ICATIBANT ACETATE
     Dosage: UNK
     Route: 065
     Dates: start: 20210514
  7. ATROVENT [Concomitant]
     Active Substance: IPRATROPIUM BROMIDE
     Indication: Hereditary angioedema
     Dosage: UNK
     Route: 065

REACTIONS (4)
  - Hospitalisation [Unknown]
  - Dyspnoea [Unknown]
  - Hereditary angioedema [Unknown]
  - Inappropriate schedule of product administration [Unknown]

NARRATIVE: CASE EVENT DATE: 20210610
